FAERS Safety Report 25165050 (Version 2)
Quarter: 2025Q2

REPORT INFORMATION
  Report Type: Spontaneous
  Country: JP (occurrence: JP)
  Receive Date: 20250406
  Receipt Date: 20250508
  Transmission Date: 20250717
  Serious: Yes (Hospitalization)
  Sender: JOHNSON AND JOHNSON
  Company Number: JP-JNJFOC-20250406568

PATIENT
  Age: 41 Year
  Sex: Female

DRUGS (4)
  1. PALIPERIDONE PALMITATE [Suspect]
     Active Substance: PALIPERIDONE PALMITATE
     Indication: Schizophrenia
     Route: 030
  2. PALIPERIDONE PALMITATE [Suspect]
     Active Substance: PALIPERIDONE PALMITATE
     Route: 030
     Dates: start: 202503, end: 202503
  3. PALIPERIDONE PALMITATE [Suspect]
     Active Substance: PALIPERIDONE PALMITATE
  4. UNSPECIFIED INGREDIENT [Concomitant]
     Active Substance: UNSPECIFIED INGREDIENT
     Indication: Schizophrenia
     Route: 048

REACTIONS (2)
  - Injury [Unknown]
  - Hip arthroplasty [Unknown]

NARRATIVE: CASE EVENT DATE: 20250101
